FAERS Safety Report 6385579-5 (Version None)
Quarter: 2009Q3

REPORT INFORMATION
  Report Type: 
  Country: None (occurrence: None)
  Receive Date: 20090929
  Receipt Date: 20090226
  Transmission Date: 20100115
  Serious: Yes (Other)
  Sender: FDA-Public Use
  Company Number: LMI-2009-00024

PATIENT
  Age: 55 Year
  Sex: Male
  Weight: 71.2147 kg

DRUGS (11)
  1. DEFINITY [Suspect]
     Indication: PREOPERATIVE CARE
     Dosage: 1 ML, INTRAVENOUS, 4 ML, INTRAVENOUS
     Route: 042
     Dates: start: 20090225, end: 20090225
  2. DEFINITY [Suspect]
     Indication: PREOPERATIVE CARE
     Dosage: 1 ML, INTRAVENOUS, 4 ML, INTRAVENOUS
     Route: 042
     Dates: start: 20090225, end: 20090225
  3. HYDROCODONE W/APAP (PARACETAMOL, HYDROCODONE) [Concomitant]
  4. ASPIRIN [Concomitant]
  5. LASIX [Concomitant]
  6. XENICAL [Concomitant]
  7. PAXIL [Concomitant]
  8. HYDROCHLOROTHIAZIDE [Concomitant]
  9. TRAMADOL HCL [Concomitant]
  10. AMOXICILLIN [Concomitant]
  11. FISH OIL (FISH OIL) [Concomitant]

REACTIONS (5)
  - BLOOD PRESSURE DECREASED [None]
  - DYSPNOEA [None]
  - MUSCLE SPASMS [None]
  - MUSCULOSKELETAL STIFFNESS [None]
  - WHEEZING [None]
